FAERS Safety Report 7309056-X (Version None)
Quarter: 2011Q1

REPORT INFORMATION
  Report Type: 
  Country: None (occurrence: None)
  Receive Date: 20110223
  Receipt Date: 20110220
  Transmission Date: 20110831
  Serious: Yes (Other)
  Sender: FDA-Public Use
  Company Number: US-PFIZER INC-2011037174

PATIENT
  Sex: Female
  Weight: 77.1 kg

DRUGS (4)
  1. CHANTIX [Suspect]
     Indication: SMOKING CESSATION THERAPY
     Dosage: 0.5 MG, 1X/DAY
     Route: 048
     Dates: start: 20110203
  2. VENLAFAXINE [Concomitant]
     Indication: BIPOLAR DISORDER
     Dosage: 100 MG, 1X/DAY
     Route: 048
  3. RISPERIDONE [Concomitant]
     Indication: BIPOLAR DISORDER
     Dosage: 1 MG ONE AND HALF TABLET, DAILY
     Route: 048
  4. LAMOTRIGINE [Concomitant]
     Indication: BIPOLAR DISORDER
     Dosage: 200 MG, 2X/DAY (ONE IN MORNING AND ONE AT NIGHT)
     Route: 048

REACTIONS (2)
  - HYPERPHAGIA [None]
  - WEIGHT INCREASED [None]
